FAERS Safety Report 5964789-2 (Version None)
Quarter: 2008Q4

REPORT INFORMATION
  Report Type: 
  Country: None (occurrence: None)
  Receive Date: 20081124
  Receipt Date: 20081124
  Transmission Date: 20090506
  Serious: Yes (Other)
  Sender: FDA-Public Use
  Company Number: None

PATIENT
  Age: 29 Year
  Sex: Female
  Weight: 86.1834 kg

DRUGS (2)
  1. LYRICA [Suspect]
     Indication: FIBROMYALGIA
     Dosage: 75MG TWICE DAILY PO
     Route: 048
  2. LYRICA [Suspect]
     Indication: NEURALGIA
     Dosage: 75MG TWICE DAILY PO
     Route: 048

REACTIONS (7)
  - ABDOMINAL DISTENSION [None]
  - BACK PAIN [None]
  - CONDITION AGGRAVATED [None]
  - CONVULSION [None]
  - FIBROMYALGIA [None]
  - WEIGHT INCREASED [None]
  - WEIGHT LOSS POOR [None]
